FAERS Safety Report 20813776 (Version 1)
Quarter: 2022Q2

REPORT INFORMATION
  Report Type: Spontaneous
  Country: US (occurrence: None)
  Receive Date: 20220510
  Receipt Date: 20220510
  Transmission Date: 20220721
  Serious: Yes (unspecified)
  Sender: FDA-Public Use
  Company Number: None

PATIENT
  Age: 76 Year
  Sex: Male
  Weight: 87.5 kg

DRUGS (3)
  1. TRANEXAMIC ACID [Suspect]
     Active Substance: TRANEXAMIC ACID
     Indication: Haemorrhage prophylaxis
     Dosage: FREQUENCY : ONCE;?
     Route: 041
  2. mepivacaine (polocaine) 2% injection [Concomitant]
     Dates: start: 20220509, end: 20220509
  3. SEVOFLURANE [Concomitant]
     Active Substance: SEVOFLURANE
     Dates: start: 20220509, end: 20220509

REACTIONS (1)
  - Myoclonus [None]

NARRATIVE: CASE EVENT DATE: 20220509
